FAERS Safety Report 16362004 (Version 7)
Quarter: 2022Q1

REPORT INFORMATION
  Report Type: Spontaneous
  Country: US (occurrence: US)
  Receive Date: 20190528
  Receipt Date: 20220307
  Transmission Date: 20220423
  Serious: No
  Sender: FDA-Public Use
  Company Number: US-PFIZER INC-2019226757

PATIENT
  Age: 63 Year
  Sex: Male
  Weight: 117.93 kg

DRUGS (3)
  1. NORPACE CR [Suspect]
     Active Substance: DISOPYRAMIDE PHOSPHATE
     Indication: Hypertrophic cardiomyopathy
     Dosage: 100 MG, 2X/DAY
  2. NORPACE CR [Suspect]
     Active Substance: DISOPYRAMIDE PHOSPHATE
     Indication: Cardiac disorder
     Dosage: 150 MG, 2X/DAY
  3. METOPROLOL [Concomitant]
     Active Substance: METOPROLOL
     Indication: Heart rate decreased
     Dosage: UNK

REACTIONS (2)
  - Drug level fluctuating [Unknown]
  - Off label use [Unknown]
